FAERS Safety Report 22641537 (Version 1)
Quarter: 2023Q2

REPORT INFORMATION
  Report Type: Spontaneous
  Country: US (occurrence: None)
  Receive Date: 20230623
  Receipt Date: 20230623
  Transmission Date: 20230722
  Serious: Yes (Other)
  Sender: FDA-Public Use
  Company Number: None

PATIENT
  Sex: Female

DRUGS (1)
  1. PROGESTERONE [Suspect]
     Active Substance: PROGESTERONE
     Indication: Infertility female
     Dosage: FREQUENCY : DAILY;?
     Route: 030

REACTIONS (1)
  - Fallopian tube disorder [None]
